FAERS Safety Report 7003074-7 (Version None)
Quarter: 2010Q3

REPORT INFORMATION
  Report Type: 
  Country: None (occurrence: None)
  Receive Date: 20100920
  Receipt Date: 20091223
  Transmission Date: 20110219
  Serious: No
  Sender: FDA-Public Use
  Company Number: US-ASTRAZENECA-2009SE33326

PATIENT
  Sex: Male
  Weight: 63.5 kg

DRUGS (5)
  1. SEROQUEL [Suspect]
     Route: 048
  2. LITHIUM [Concomitant]
  3. CLONOPIN [Concomitant]
  4. DEPAKOTE [Concomitant]
  5. DIVALPROVEX [Concomitant]

REACTIONS (2)
  - FATIGUE [None]
  - LOSS OF CONSCIOUSNESS [None]
